FAERS Safety Report 4588323-7 (Version None)
Quarter: 2005Q1

REPORT INFORMATION
  Report Type: 
  Country: None (occurrence: None)
  Receive Date: 20050216
  Receipt Date: 20050204
  Transmission Date: 20050727
  Serious: Yes (Death, Hospitalization)
  Sender: FDA-Public Use
  Company Number: CAP04000132

PATIENT
  Age: 80 Year
  Sex: Female
  Weight: 68.9 kg

DRUGS (3)
  1. ACTONEL [Suspect]
     Indication: OSTEOPOROSIS
     Dosage: 35 MG ONCE WEEKLY, ORAL
     Route: 048
     Dates: start: 20031001, end: 20040401
  2. LIPITOR [Suspect]
     Indication: HYPERLIPIDAEMIA
     Dosage: 20 MG DAILY, ORAL
     Route: 048
     Dates: start: 19990101, end: 20040401
  3. ELTROXIN ^GLAXO^ (LEVOTHROXINE SODIUM) [Suspect]
     Indication: HYPOTHYROIDISM
     Dosage: 0.1 MG DAILY, ORAL
     Route: 048
     Dates: start: 19900101

REACTIONS (14)
  - ABDOMINAL MASS [None]
  - AORTIC ATHEROSCLEROSIS [None]
  - ASCITES [None]
  - CORONARY ARTERY DISEASE [None]
  - DIVERTICULUM [None]
  - GENERALISED OEDEMA [None]
  - HEPATIC CIRRHOSIS [None]
  - HEPATIC FAILURE [None]
  - HYPERLIPIDAEMIA [None]
  - INTERNATIONAL NORMALISED RATIO INCREASED [None]
  - JAUNDICE [None]
  - OSTEOPOROSIS [None]
  - PANCREATIC NECROSIS [None]
  - PANCREATITIS [None]
